FAERS Safety Report 8850010 (Version 2)
Quarter: 2012Q4

REPORT INFORMATION
  Report Type: 
  Country: IT (occurrence: IT)
  Receive Date: 20121019
  Receipt Date: 20121130
  Transmission Date: 20130627
  Serious: Yes (Hospitalization)
  Sender: FDA-Public Use
  Company Number: IT-FRI-1000039515

PATIENT
  Age: 80 Year
  Sex: Female

DRUGS (3)
  1. NEBIVOLOL [Suspect]
     Indication: HYPERTENSION
     Dosage: 5 mg
     Route: 048
     Dates: start: 20120101, end: 20121008
  2. TORVAST [Concomitant]
  3. MICARDIS [Concomitant]
     Indication: HYPERTENSION
     Dosage: 80 mg
     Dates: start: 20110101

REACTIONS (2)
  - Bundle branch block left [Recovering/Resolving]
  - Bundle branch block right [Recovering/Resolving]
